FAERS Safety Report 8474309-9 (Version None)
Quarter: 2012Q2

REPORT INFORMATION
  Report Type: 
  Country: None (occurrence: None)
  Receive Date: 20120628
  Receipt Date: 20120622
  Transmission Date: 20120825
  Serious: Yes (Other)
  Sender: FDA-Public Use
  Company Number: US-AMGEN-USASP2012001034

PATIENT
  Age: 55 Year
  Sex: Female
  Weight: 126.98 kg

DRUGS (3)
  1. ENBREL [Suspect]
     Indication: SERONEGATIVE ARTHRITIS
     Dosage: 50 MG, QWK
     Dates: start: 20111201
  2. ENBREL [Suspect]
     Indication: SJOGREN'S SYNDROME
  3. ENBREL [Suspect]
     Indication: SYSTEMIC LUPUS ERYTHEMATOSUS

REACTIONS (6)
  - PHOTOPHOBIA [None]
  - TOOTHACHE [None]
  - INJECTION SITE REACTION [None]
  - INJECTION SITE PRURITUS [None]
  - DIZZINESS [None]
  - EAR INFECTION [None]
